FAERS Safety Report 9475278 (Version 1)
Quarter: 2013Q3

REPORT INFORMATION
  Report Type: Spontaneous
  Country: ZA (occurrence: ZA)
  Receive Date: 20130826
  Receipt Date: 20130826
  Transmission Date: 20140515
  Serious: Yes (Other)
  Sender: FDA-Public Use
  Company Number: ZA-AMGEN-ZAFSP2013059065

PATIENT
  Age: 63 Year
  Sex: Male

DRUGS (6)
  1. ENBREL [Suspect]
     Indication: RHEUMATOID ARTHRITIS
     Dosage: 25 MG, 2 TIMES/WK
     Route: 058
  2. ENBREL [Suspect]
     Dosage: 50 MG, WEEKLY
     Route: 058
     Dates: start: 201211
  3. METHOTREXATE [Concomitant]
     Dosage: WEEKLY
     Route: 030
     Dates: start: 2005
  4. PARACETAMOL [Concomitant]
     Dosage: 2 PRN (AS NEEDED)
     Route: 048
     Dates: start: 2005
  5. PREDNISONE [Concomitant]
     Dosage: 1 DAILY
     Route: 048
     Dates: start: 2005
  6. FOLIC ACID [Concomitant]
     Dosage: 1 DAILY
     Route: 048
     Dates: start: 2005

REACTIONS (5)
  - Cough [Recovering/Resolving]
  - Pyrexia [Recovering/Resolving]
  - Lower respiratory tract infection [Recovering/Resolving]
  - Injection site pain [Not Recovered/Not Resolved]
  - Injection site pruritus [Not Recovered/Not Resolved]
